FAERS Safety Report 9056859 (Version 1)
Quarter: 2013Q1

REPORT INFORMATION
  Report Type: Report from Study
  Country: JP (occurrence: JP)
  Receive Date: 20130201
  Receipt Date: 20130201
  Transmission Date: 20140127
  Serious: Yes (Death, Other)
  Sender: FDA-Public Use
  Company Number: JP-GLAXOSMITHKLINE-B0860730A

PATIENT
  Age: 50 None
  Sex: Female
  Weight: 60 kg

DRUGS (8)
  1. TYKERB [Suspect]
     Indication: BREAST CANCER
     Route: 048
     Dates: start: 20110510, end: 20110921
  2. LOXOPROFEN [Suspect]
     Indication: CANCER PAIN
     Route: 048
     Dates: start: 20110401
  3. XELODA [Concomitant]
     Route: 048
     Dates: start: 20110510, end: 20110921
  4. MAGLAX [Concomitant]
     Indication: CONSTIPATION
     Route: 048
     Dates: start: 20110509
  5. DECADRON [Concomitant]
     Indication: MOVEMENT DISORDER
     Route: 048
     Dates: start: 20110414, end: 20110605
  6. DECADRON [Concomitant]
     Indication: MOVEMENT DISORDER
     Route: 048
     Dates: start: 20110908
  7. LYRICA [Concomitant]
     Indication: NEURALGIA
     Route: 048
     Dates: start: 20110401
  8. BAKTAR [Concomitant]
     Indication: PROPHYLAXIS
     Route: 048
     Dates: start: 20110425

REACTIONS (6)
  - VIIth nerve paralysis [Not Recovered/Not Resolved]
  - Hypoaesthesia [Recovered/Resolved]
  - Palmar-plantar erythrodysaesthesia syndrome [Fatal]
  - Decreased appetite [Fatal]
  - Movement disorder [Not Recovered/Not Resolved]
  - Sensory disturbance [Not Recovered/Not Resolved]
